FAERS Safety Report 6798934-6 (Version None)
Quarter: 2010Q2

REPORT INFORMATION
  Report Type: 
  Country: None (occurrence: None)
  Receive Date: 20100616
  Receipt Date: 20100601
  Transmission Date: 20101027
  Serious: Yes (Other)
  Sender: FDA-Public Use
  Company Number: A0862139A

PATIENT
  Age: 59 Year
  Sex: Female

DRUGS (1)
  1. ASPIRIN + CAFFEINE POWDER (ASPIRIN + CAFFEINE) [Suspect]
     Indication: DRUG USE FOR UNKNOWN INDICATION
     Dosage: ORAL
     Route: 048

REACTIONS (6)
  - ASTHMA [None]
  - HYPERSENSITIVITY [None]
  - PRODUCT FORMULATION ISSUE [None]
  - TINNITUS [None]
  - UNEVALUABLE EVENT [None]
  - VISION BLURRED [None]
